FAERS Safety Report 9782216 (Version 2)
Quarter: 2014Q2

REPORT INFORMATION
  Report Type: Spontaneous
  Country: SE (occurrence: SE)
  Receive Date: 20131226
  Receipt Date: 20140408
  Transmission Date: 20141212
  Serious: Yes (Disabling)
  Sender: FDA-Public Use
  Company Number: SE-ROCHE-1325980

PATIENT
  Age: 81 Year
  Sex: Female

DRUGS (4)
  1. LUCENTIS [Suspect]
     Indication: AGE-RELATED MACULAR DEGENERATION
     Dosage: 10 MG/ML, IN RIGHT EYE
     Route: 050
     Dates: start: 20110202
  2. LUCENTIS [Suspect]
     Dosage: TOTAL 8 INJECTIONS
     Route: 050
     Dates: start: 20131101
  3. TROMBYL [Concomitant]
  4. RAMIPRIL [Concomitant]

REACTIONS (2)
  - Retinal artery embolism [Not Recovered/Not Resolved]
  - Visual field defect [Not Recovered/Not Resolved]
